FAERS Safety Report 11253431 (Version 1)
Quarter: 2015Q3

REPORT INFORMATION
  Report Type: Spontaneous
  Country: CA (occurrence: CA)
  Receive Date: 20150709
  Receipt Date: 20150709
  Transmission Date: 20151125
  Serious: Yes (Hospitalization)
  Sender: FDA-Public Use
  Company Number: CA-BEH-2012031804

PATIENT
  Age: 40 Year
  Sex: Male
  Weight: 100 kg

DRUGS (5)
  1. PREDNISONE. [Concomitant]
     Active Substance: PREDNISONE
     Indication: IMMUNE THROMBOCYTOPENIC PURPURA
     Dosage: TAPERING REGIMEN
     Route: 048
     Dates: start: 20120224
  2. LOTEPREDNOL EYEDROPS [Concomitant]
  3. PRIVIGEN [Suspect]
     Active Substance: HUMAN IMMUNOGLOBULIN G
     Indication: IMMUNE THROMBOCYTOPENIC PURPURA
     Route: 042
     Dates: start: 20120315
  4. TYLENOL WITH CODEINE [Concomitant]
     Active Substance: ACETAMINOPHEN\CODEINE PHOSPHATE
     Route: 048
  5. ROBAXACET [Concomitant]
     Active Substance: ACETAMINOPHEN\METHOCARBAMOL
     Route: 048

REACTIONS (14)
  - Headache [Recovering/Resolving]
  - Meningitis bacterial [Recovered/Resolved]
  - Phonophobia [Recovered/Resolved]
  - Pain [Recovered/Resolved]
  - Head discomfort [Recovered/Resolved]
  - Feeling of body temperature change [Recovered/Resolved]
  - Haemoglobin decreased [Recovered/Resolved]
  - Meningitis aseptic [Recovered/Resolved]
  - Neck pain [Recovered/Resolved]
  - Meningism [Recovered/Resolved]
  - Vomiting [Recovered/Resolved]
  - Chills [Recovered/Resolved]
  - Haemolysis [Recovered/Resolved]
  - Nausea [Recovered/Resolved]

NARRATIVE: CASE EVENT DATE: 20120315
